FAERS Safety Report 10300574 (Version 1)
Quarter: 2014Q3

REPORT INFORMATION
  Report Type: Spontaneous
  Country: US (occurrence: US)
  Receive Date: 20140714
  Receipt Date: 20140714
  Transmission Date: 20150326
  Serious: Yes (Other)
  Sender: FDA-Public Use
  Company Number: US-ROCHE-1432192

PATIENT
  Sex: Male

DRUGS (1)
  1. ACTILYSE [Suspect]
     Active Substance: ALTEPLASE
     Indication: CARDIAC VALVE REPLACEMENT COMPLICATION
     Route: 040

REACTIONS (2)
  - Off label use [Unknown]
  - Vascular pseudoaneurysm [Recovered/Resolved]
